FAERS Safety Report 7126192-1 (Version None)
Quarter: 2010Q4

REPORT INFORMATION
  Report Type: 
  Country: None (occurrence: None)
  Receive Date: 20101129
  Receipt Date: 20101116
  Transmission Date: 20110411
  Serious: Yes (Other)
  Sender: FDA-Public Use
  Company Number: US-JNJFOC-20101107848

PATIENT
  Age: 37 Year
  Sex: Female

DRUGS (4)
  1. TOPAMAX [Suspect]
     Indication: EPILEPSY
     Route: 065
  2. MACROBID [Suspect]
     Indication: URINARY TRACT INFECTION
     Route: 065
  3. STEROIDS NOS [Suspect]
     Indication: MATERNAL THERAPY TO ENHANCE FOETAL LUNG MATURITY
     Route: 065
  4. ANTIBIOTICS [Suspect]
     Indication: UNEVALUABLE EVENT
     Route: 065

REACTIONS (2)
  - DRUG EXPOSURE DURING PREGNANCY [None]
  - PREMATURE LABOUR [None]
